FAERS Safety Report 20390478 (Version 5)
Quarter: 2022Q2

REPORT INFORMATION
  Report Type: Report from Study
  Country: EG (occurrence: EG)
  Receive Date: 20220128
  Receipt Date: 20220426
  Transmission Date: 20220720
  Serious: Yes (Other)
  Sender: FDA-Public Use
  Company Number: EG-NOVARTISPH-NVSC2021EG246377

PATIENT
  Sex: Male

DRUGS (10)
  1. GILENYA [Suspect]
     Active Substance: FINGOLIMOD HYDROCHLORIDE
     Indication: Multiple sclerosis
     Dosage: 0.5 MG, QD
     Route: 048
     Dates: start: 2017
  2. GILENYA [Suspect]
     Active Substance: FINGOLIMOD HYDROCHLORIDE
     Dosage: 0.5 MG, QD
     Route: 048
     Dates: start: 2018
  3. OSTEOCARE [Concomitant]
     Active Substance: CALCIUM\CHOLECALCIFEROL\MAGNESIUM\ZINC
     Indication: Movement disorder
     Dosage: 1 DF, QD
     Route: 065
     Dates: start: 202109
  4. OSTEOCARE [Concomitant]
     Active Substance: CALCIUM\CHOLECALCIFEROL\MAGNESIUM\ZINC
     Dosage: 1 DOSAGE FORM, QD
     Route: 065
     Dates: start: 2019
  5. OMEGA 3 [Concomitant]
     Active Substance: CAPSAICIN
     Indication: Supplementation therapy
     Dosage: 1 DF, QD
     Route: 065
     Dates: start: 202109
  6. OMEGA 3 [Concomitant]
     Active Substance: CAPSAICIN
     Dosage: 1 DOSAGE FORM, QD
     Route: 065
     Dates: start: 2019
  7. TRILEPTAL [Concomitant]
     Active Substance: OXCARBAZEPINE
     Indication: Movement disorder
     Dosage: 1 DOSAGE FORM, BID
     Route: 048
     Dates: start: 2017
  8. TRILEPTAL [Concomitant]
     Active Substance: OXCARBAZEPINE
     Dosage: 1 DF, BID
     Route: 065
     Dates: start: 2020
  9. ESTIKAN [Concomitant]
     Indication: Nerve injury
     Dosage: UNK, QD
     Route: 065
     Dates: start: 202112
  10. ESTIKAN [Concomitant]
     Dosage: 1 DOSAGE FORM
     Route: 065
     Dates: start: 2018

REACTIONS (13)
  - Neck pain [Not Recovered/Not Resolved]
  - Pain in extremity [Not Recovered/Not Resolved]
  - White blood cell count decreased [Unknown]
  - Hepatic enzyme increased [Unknown]
  - Limb discomfort [Not Recovered/Not Resolved]
  - Amnesia [Not Recovered/Not Resolved]
  - Psychological trauma [Not Recovered/Not Resolved]
  - Multiple sclerosis [Not Recovered/Not Resolved]
  - Headache [Not Recovered/Not Resolved]
  - Hypokinesia [Not Recovered/Not Resolved]
  - Hemihypoaesthesia [Not Recovered/Not Resolved]
  - Muscular weakness [Unknown]
  - Drug ineffective [Not Recovered/Not Resolved]

NARRATIVE: CASE EVENT DATE: 20170101
